APPROVED DRUG PRODUCT: KETOROLAC TROMETHAMINE
Active Ingredient: KETOROLAC TROMETHAMINE
Strength: 30MG/ML
Dosage Form/Route: INJECTABLE;INJECTION
Application: A074801 | Product #002
Applicant: HOSPIRA INC
Approved: Jun 5, 1997 | RLD: No | RS: No | Type: DISCN